FAERS Safety Report 20699879 (Version 1)
Quarter: 2022Q2

REPORT INFORMATION
  Report Type: Spontaneous
  Country: US (occurrence: None)
  Receive Date: 20220411
  Receipt Date: 20220411
  Transmission Date: 20220721
  Serious: No
  Sender: FDA-Public Use
  Company Number: None

PATIENT
  Age: 72 Year
  Sex: Male
  Weight: 191.8 kg

DRUGS (12)
  1. CAPECITABINE [Suspect]
     Active Substance: CAPECITABINE
     Indication: Pancreatic carcinoma
     Dosage: FREQUENCY : TWICE A DAY;?
     Route: 048
     Dates: start: 202112, end: 20220326
  2. CAPECITABINE [Suspect]
     Active Substance: CAPECITABINE
     Indication: Pancreatic carcinoma
     Dosage: FREQUENCY : TWICE A DAY;?
     Route: 048
     Dates: start: 202112, end: 20220328
  3. Accu-Chek Softclix [Concomitant]
  4. ATORVASTATIN CALCIUM [Concomitant]
  5. CITALOPRAM [Concomitant]
  6. FAMOTIDINE [Concomitant]
     Active Substance: FAMOTIDINE
  7. LANTUS SUBCUTANEOUS [Concomitant]
  8. METFORMIN HYDROCHLORIDE [Concomitant]
     Active Substance: METFORMIN HYDROCHLORIDE
  9. MULTIVITAMIN [Concomitant]
  10. NOVOLOG SUBCUTANEOUS [Concomitant]
  11. PROMETHAZINE HCI [Concomitant]
  12. XARELTO [Concomitant]
     Active Substance: RIVAROXABAN

REACTIONS (1)
  - Disease progression [None]
